FAERS Safety Report 10222150 (Version 1)
Quarter: 2014Q2

REPORT INFORMATION
  Report Type: Spontaneous
  Country: MX (occurrence: MX)
  Receive Date: 20140606
  Receipt Date: 20140606
  Transmission Date: 20141212
  Serious: No
  Sender: FDA-Public Use
  Company Number: MX-BIOMARINAP-MX-2014-103329

PATIENT
  Sex: Male
  Weight: 23.5 kg

DRUGS (3)
  1. NAGLAZYME [Suspect]
     Indication: MUCOPOLYSACCHARIDOSIS VI
     Dosage: 20 MG, QW
     Route: 041
     Dates: start: 20100330
  2. PARACETAMOL [Concomitant]
     Indication: PREMEDICATION
     Dosage: 10 MG/KG, UNK
  3. CETIRIZINE [Concomitant]
     Indication: PREMEDICATION
     Dosage: 0.25 MG/KG, UNK

REACTIONS (3)
  - Upper respiratory tract infection [Unknown]
  - Asthma [Unknown]
  - Mitral valve incompetence [Unknown]
